FAERS Safety Report 8396311-8 (Version None)
Quarter: 2012Q2

REPORT INFORMATION
  Report Type: 
  Country: None (occurrence: None)
  Receive Date: 20120530
  Receipt Date: 20120518
  Transmission Date: 20120825
  Serious: Yes (Other)
  Sender: FDA-Public Use
  Company Number: US-ELI_LILLY_AND_COMPANY-US201201006132

PATIENT
  Sex: Female

DRUGS (8)
  1. FORTEO [Suspect]
     Indication: OSTEOPOROSIS
     Dosage: 20 UG, QD
     Route: 065
     Dates: start: 20110823
  2. FOSAMAX [Concomitant]
     Dosage: UNK
  3. PRAVASTATIN [Concomitant]
     Dosage: UNK
  4. FORTEO [Suspect]
     Dosage: 20 UG, QD
     Route: 065
  5. AMLODIPINE BESYLATE [Concomitant]
     Dosage: UNK
  6. AMLODIPINE BESYLATE [Concomitant]
     Indication: HYPERTENSION
     Dosage: UNK
  7. FORTEO [Suspect]
     Dosage: 20 UG, QD
  8. PRAVASTATIN [Concomitant]
     Indication: BLOOD CHOLESTEROL INCREASED
     Dosage: UNK

REACTIONS (12)
  - FATIGUE [None]
  - PARAESTHESIA [None]
  - DYSPNOEA [None]
  - VOMITING [None]
  - ALOPECIA [None]
  - PULMONARY HYPERTENSION [None]
  - HEADACHE [None]
  - VASCULAR OCCLUSION [None]
  - GAIT DISTURBANCE [None]
  - TOOTHACHE [None]
  - ERYTHEMA [None]
  - MOBILITY DECREASED [None]
